FAERS Safety Report 7328287-6 (Version None)
Quarter: 2011Q1

REPORT INFORMATION
  Report Type: 
  Country: None (occurrence: None)
  Receive Date: 20110303
  Receipt Date: 20110303
  Transmission Date: 20110831
  Serious: Yes (Other)
  Sender: FDA-Public Use
  Company Number: MX-ELI_LILLY_AND_COMPANY-MX201101004680

PATIENT
  Age: 63 Year
  Sex: Male
  Weight: 72 kg

DRUGS (2)
  1. HUMALOG MIX 75/25 [Suspect]
     Indication: TYPE 2 DIABETES MELLITUS
     Dosage: 50 IU, DAILY (1/D)
     Route: 058
     Dates: start: 20080701
  2. HUMALOG MIX 75/25 [Suspect]
     Dosage: 20 IU, OTHER
     Route: 058
     Dates: start: 20080701

REACTIONS (2)
  - RETINOPATHY [None]
  - INJECTION SITE PAIN [None]
